FAERS Safety Report 10004263 (Version 1)
Quarter: 2014Q1

REPORT INFORMATION
  Report Type: Spontaneous
  Country: FR (occurrence: FR)
  Receive Date: 20140312
  Receipt Date: 20140312
  Transmission Date: 20141002
  Serious: Yes (Other)
  Sender: FDA-Public Use
  Company Number: FR-PFIZER INC-2014070372

PATIENT
  Age: 88 Year
  Sex: Female

DRUGS (8)
  1. CORDARONE [Suspect]
     Dosage: 3 DF, 1X/DAY
     Route: 048
     Dates: start: 20131210, end: 20131212
  2. AMOXICILLIN/CLAVULANIC ACID [Suspect]
     Dosage: 3 DF, 1X/DAY
     Route: 048
     Dates: start: 20131210, end: 20131211
  3. LASILIX [Suspect]
     Dosage: 1 DF, 1X/DAY
     Route: 048
     Dates: start: 20131126, end: 20131216
  4. LEXOMIL [Suspect]
     Dosage: 1 DF, 1X/DAY
     Route: 048
     Dates: start: 20131129, end: 20131212
  5. ATACAND [Concomitant]
  6. BISOCE [Concomitant]
  7. KARDEGIC [Concomitant]
  8. KEPPRA [Concomitant]

REACTIONS (2)
  - Erythema [Recovering/Resolving]
  - Pruritus [Recovering/Resolving]
